FAERS Safety Report 17997598 (Version 1)
Quarter: 2020Q3

REPORT INFORMATION
  Report Type: Spontaneous
  Country: FR (occurrence: FR)
  Receive Date: 20200708
  Receipt Date: 20200708
  Transmission Date: 20201103
  Serious: Yes (Death)
  Sender: FDA-Public Use
  Company Number: FR-ANIPHARMA-2020-FR-000183

PATIENT
  Age: 76 Year
  Sex: Male
  Weight: 75 kg

DRUGS (5)
  1. VENTOLINE [Concomitant]
     Active Substance: ALBUTEROL
     Route: 065
  2. PANTOPRAZOLE [Concomitant]
     Active Substance: PANTOPRAZOLE
     Route: 065
  3. SPIRIVA [Concomitant]
     Active Substance: TIOTROPIUM BROMIDE MONOHYDRATE
     Route: 065
  4. CANDESARTAN. [Suspect]
     Active Substance: CANDESARTAN
     Indication: HYPERTENSION
     Route: 048
     Dates: end: 20200316
  5. SPIFEN [Suspect]
     Active Substance: IBUPROFEN
     Route: 048
     Dates: start: 202003, end: 202003

REACTIONS (5)
  - COVID-19 pneumonia [Fatal]
  - Coronavirus infection [Fatal]
  - Respiratory failure [Fatal]
  - Respiratory distress [Fatal]
  - COVID-19 [Fatal]

NARRATIVE: CASE EVENT DATE: 20200309
